FAERS Safety Report 22797029 (Version 2)
Quarter: 2024Q1

REPORT INFORMATION
  Report Type: Spontaneous
  Country: US (occurrence: US)
  Receive Date: 20230808
  Receipt Date: 20240229
  Transmission Date: 20240409
  Serious: No
  Sender: FDA-Public Use
  Company Number: CA-SA-SAC00000000299657

PATIENT
  Age: 62 Year
  Sex: Female

DRUGS (6)
  1. DUPILUMAB [Suspect]
     Active Substance: DUPILUMAB
     Indication: Dermatitis atopic
     Dosage: 300 MG, QOW
     Route: 058
     Dates: start: 202205
  2. DUPILUMAB [Suspect]
     Active Substance: DUPILUMAB
     Indication: Psoriatic arthropathy
  3. CLARITHROMYCIN [Concomitant]
     Active Substance: CLARITHROMYCIN
  4. AMOXICILLIN [Concomitant]
     Active Substance: AMOXICILLIN
  5. OMEPRAZOLE [Concomitant]
     Active Substance: OMEPRAZOLE
  6. PEPTO-BISMOL [Concomitant]
     Active Substance: BISMUTH SUBSALICYLATE

REACTIONS (3)
  - Helicobacter infection [Unknown]
  - Rash [Unknown]
  - Product use in unapproved indication [Unknown]

NARRATIVE: CASE EVENT DATE: 20220501
